FAERS Safety Report 19026653 (Version 1)
Quarter: 2021Q1

REPORT INFORMATION
  Report Type: Spontaneous
  Country: CN (occurrence: CN)
  Receive Date: 20210318
  Receipt Date: 20210318
  Transmission Date: 20210420
  Serious: Yes (Other)
  Sender: FDA-Public Use
  Company Number: CN-NOVOPROD-795082

PATIENT
  Age: 9 Year
  Sex: Female
  Weight: 27 kg

DRUGS (1)
  1. NOVORAPID [Suspect]
     Active Substance: INSULIN ASPART
     Indication: TYPE 1 DIABETES MELLITUS
     Dosage: 6 IU, TID
     Route: 058
     Dates: start: 20210216, end: 20210226

REACTIONS (6)
  - Glomerulonephritis acute [Recovering/Resolving]
  - Headache [Recovering/Resolving]
  - Urine abnormality [Recovering/Resolving]
  - Oedema [Recovering/Resolving]
  - Abdominal distension [Recovering/Resolving]
  - Blood glucose fluctuation [Unknown]

NARRATIVE: CASE EVENT DATE: 20210223
